FAERS Safety Report 19699323 (Version 2)
Quarter: 2021Q3

REPORT INFORMATION
  Report Type: Report from Study
  Country: IT (occurrence: IT)
  Receive Date: 20210813
  Receipt Date: 20210908
  Transmission Date: 20211014
  Serious: Yes (Other)
  Sender: FDA-Public Use
  Company Number: IT-BAXTER-2021BAX024238

PATIENT
  Age: 35 Year
  Sex: Male

DRUGS (2)
  1. CIPROSOL 2MG/ML, SOLUZIONE PER INFUSIONE [Suspect]
     Active Substance: CIPROFLOXACIN LACTATE
     Indication: MUCOCUTANEOUS LEISHMANIASIS
     Route: 065
  2. EXOMAX, 2 MG/ML. SOLUZIONE PER INFUSIONE [Suspect]
     Active Substance: FLUCONAZOLE
     Indication: MUCOCUTANEOUS LEISHMANIASIS
     Route: 065

REACTIONS (1)
  - Azotaemia [Unknown]
